FAERS Safety Report 13819696 (Version 3)
Quarter: 2018Q2

REPORT INFORMATION
  Report Type: Spontaneous
  Country: US (occurrence: US)
  Receive Date: 20170731
  Receipt Date: 20180511
  Transmission Date: 20180711
  Serious: Yes (Hospitalization, Other)
  Sender: FDA-Public Use
  Company Number: US-ASTRAZENECA-2017SE75742

PATIENT
  Age: 865 Month
  Sex: Female
  Weight: 52.2 kg

DRUGS (19)
  1. PULMICORT FLEXHALER [Suspect]
     Active Substance: BUDESONIDE
     Indication: CHRONIC OBSTRUCTIVE PULMONARY DISEASE
     Route: 055
     Dates: start: 201703
  2. ANORO ELLIPTA [Suspect]
     Active Substance: UMECLIDINIUM BROMIDE\VILANTEROL TRIFENATATE
     Indication: EMPHYSEMA
     Dosage: DAILY
     Route: 055
     Dates: start: 20170119
  3. BEVESPI AEROSPHERE [Suspect]
     Active Substance: FORMOTEROL FUMARATE\GLYCOPYRROLATE
     Indication: CHRONIC OBSTRUCTIVE PULMONARY DISEASE
     Dosage: 9/4.8 MCG, 2 PUFFS TWICE A DAY
     Route: 055
     Dates: start: 201804
  4. BEVESPI AEROSPHERE [Suspect]
     Active Substance: FORMOTEROL FUMARATE\GLYCOPYRROLATE
     Indication: ASTHMA
     Dosage: 9/4.8 MCG, 2 PUFFS TWICE A DAY
     Route: 055
     Dates: start: 201804
  5. GUAIFENESIN. [Concomitant]
     Active Substance: GUAIFENESIN
     Dosage: TWO TIMES A DAY
     Dates: start: 2018
  6. ALBUTEROL. [Concomitant]
     Active Substance: ALBUTEROL
     Route: 055
  7. PULMICORT FLEXHALER [Suspect]
     Active Substance: BUDESONIDE
     Indication: ASTHMA
     Route: 055
     Dates: start: 201703
  8. ANORO ELLIPTA [Concomitant]
     Active Substance: UMECLIDINIUM BROMIDE\VILANTEROL TRIFENATATE
     Indication: ASTHMA
     Route: 055
     Dates: start: 201701
  9. ANORO ELLIPTA [Suspect]
     Active Substance: UMECLIDINIUM BROMIDE\VILANTEROL TRIFENATATE
     Indication: ASTHMA
     Dosage: DAILY
     Route: 055
     Dates: start: 20170119
  10. ANORO ELLIPTA [Suspect]
     Active Substance: UMECLIDINIUM BROMIDE\VILANTEROL TRIFENATATE
     Indication: CHRONIC OBSTRUCTIVE PULMONARY DISEASE
     Dosage: DAILY
     Route: 055
     Dates: start: 20170119
  11. CLARITIN [Concomitant]
     Active Substance: LORATADINE
  12. LEVABUTEROL [Concomitant]
     Indication: PROPHYLAXIS
     Dosage: AS PER REQUIRED
     Dates: start: 201801
  13. NYSTATIN. [Concomitant]
     Active Substance: NYSTATIN
     Indication: FUNGAL TEST
     Dates: start: 201804
  14. PULMICORT FLEXHALER [Suspect]
     Active Substance: BUDESONIDE
     Indication: CHRONIC OBSTRUCTIVE PULMONARY DISEASE
     Route: 055
     Dates: start: 201703
  15. BEVESPI AEROSPHERE [Suspect]
     Active Substance: FORMOTEROL FUMARATE\GLYCOPYRROLATE
     Indication: EMPHYSEMA
     Dosage: 9/4.8 MCG, 2 PUFFS TWICE A DAY
     Route: 055
     Dates: start: 201804
  16. PULMICORT FLEXHALER [Suspect]
     Active Substance: BUDESONIDE
     Indication: ASTHMA
     Route: 055
     Dates: start: 201703
  17. FLUTICASONE. [Concomitant]
     Active Substance: FLUTICASONE
  18. VENTOLIN [Concomitant]
     Active Substance: ALBUTEROL SULFATE
     Indication: ASTHMA
     Route: 055
     Dates: start: 201701
  19. PREDNISONE. [Concomitant]
     Active Substance: PREDNISONE
     Dates: start: 2018

REACTIONS (26)
  - Bronchitis [Unknown]
  - Blood sodium decreased [Unknown]
  - Nervousness [Not Recovered/Not Resolved]
  - Cough [Unknown]
  - Intentional product misuse [Unknown]
  - Peripheral swelling [Unknown]
  - Productive cough [Unknown]
  - Dry throat [Unknown]
  - Dysgeusia [Unknown]
  - Joint swelling [Unknown]
  - Anxiety [Unknown]
  - Dysphonia [Unknown]
  - Increased viscosity of upper respiratory secretion [Recovered/Resolved]
  - Tongue fungal infection [Unknown]
  - Wrong technique in device usage process [Unknown]
  - Urinary tract infection [Unknown]
  - Upper-airway cough syndrome [Unknown]
  - Palpitations [Not Recovered/Not Resolved]
  - Memory impairment [Unknown]
  - Nervousness [Unknown]
  - Lower respiratory tract infection [Unknown]
  - Discomfort [Unknown]
  - Wheezing [Not Recovered/Not Resolved]
  - Visual impairment [Unknown]
  - Oral candidiasis [Recovered/Resolved]
  - Drug dose omission [Unknown]

NARRATIVE: CASE EVENT DATE: 2017
